FAERS Safety Report 23995966 (Version 2)
Quarter: 2024Q2

REPORT INFORMATION
  Report Type: Spontaneous
  Country: US (occurrence: US)
  Receive Date: 20240620
  Receipt Date: 20240624
  Transmission Date: 20240716
  Serious: Yes (Life-Threatening, Hospitalization, Other)
  Sender: FDA-Public Use
  Company Number: US-PFIZER INC-202400194186

PATIENT
  Age: 51 Year
  Sex: Female
  Weight: 74.39 kg

DRUGS (1)
  1. SUTENT [Suspect]
     Active Substance: SUNITINIB MALATE
     Indication: Gastrointestinal carcinoma
     Dosage: 37.5 MG, DAILY
     Route: 048

REACTIONS (2)
  - Cardiac failure [Not Recovered/Not Resolved]
  - Ejection fraction decreased [Recovered/Resolved]

NARRATIVE: CASE EVENT DATE: 20231101
